FAERS Safety Report 7652778-1 (Version None)
Quarter: 2011Q3

REPORT INFORMATION
  Report Type: 
  Country: None (occurrence: None)
  Receive Date: 20110802
  Receipt Date: 20110802
  Transmission Date: 20111222
  Serious: Yes (Other)
  Sender: FDA-Public Use
  Company Number: None

PATIENT
  Age: 9 Year
  Sex: Female
  Weight: 27.2 kg

DRUGS (9)
  1. ONDANSETRON [Concomitant]
  2. MECLIZINE [Suspect]
     Indication: DIZZINESS
     Dates: start: 20110716
  3. MECLIZINE [Suspect]
     Indication: NAUSEA
     Dates: start: 20110716
  4. MECLIZINE [Suspect]
     Indication: DIZZINESS
     Dates: start: 20110717
  5. MECLIZINE [Suspect]
     Indication: NAUSEA
     Dates: start: 20110717
  6. CEFDINIR [Concomitant]
  7. POLYETHYLENEL GLYCOL [Concomitant]
  8. IBUPROFEN [Concomitant]
  9. TRIMETHOPRIM [Concomitant]

REACTIONS (3)
  - DIPLOPIA [None]
  - STRABISMUS [None]
  - DISEASE RECURRENCE [None]
